FAERS Safety Report 5608931-1 (Version None)
Quarter: 2008Q1

REPORT INFORMATION
  Report Type: 
  Country: None (occurrence: None)
  Receive Date: 20080111
  Receipt Date: 20070524
  Transmission Date: 20080703
  Serious: Yes (Hospitalization, Other)
  Sender: FDA-Public Use
  Company Number: HQWYE376825MAY07

PATIENT
  Age: 73 Year
  Sex: Female
  Weight: 62.65 kg

DRUGS (3)
  1. PREMPRO [Suspect]
     Dosage: 1 TABLET 1X PER 1 DAY, ORAL
     Route: 048
     Dates: start: 20050822
  2. LIPITOR [Concomitant]
  3. DIOVAN [Concomitant]

REACTIONS (1)
  - ENDOMETRIAL CANCER [None]
